FAERS Safety Report 4939142-0 (Version None)
Quarter: 2006Q1

REPORT INFORMATION
  Report Type: 
  Country: None (occurrence: None)
  Receive Date: 20060306
  Receipt Date: 20060220
  Transmission Date: 20060701
  Serious: Yes (Hospitalization, Other)
  Sender: FDA-Public Use
  Company Number: 2006022158

PATIENT
  Age: 73 Year
  Sex: Female
  Weight: 40.5 kg

DRUGS (12)
  1. SULFASALAZINE [Suspect]
     Indication: COLITIS ULCERATIVE
     Dosage: 4 GRAM (1 GRAM 4 IN 1 D) ORAL
     Route: 048
     Dates: start: 19910101, end: 20051227
  2. SELBEX (TEPRENONE) [Concomitant]
  3. LAC B (LACTOBACILLUS BIFIDUS, LYOPHILIZED) [Concomitant]
  4. METHYCOBAL(MECOBALAMIN) [Concomitant]
  5. MAGNESIUM OXIDE [Concomitant]
  6. OMEPRAZOLE [Concomitant]
  7. ALFAROL (ALFACALCIDOL [Concomitant]
  8. ADALAT [Concomitant]
  9. ELENTAL (MINERALS NOS, VITAMINS NOS) [Concomitant]
  10. PREDONINNE (PREDNISOLONE) [Concomitant]
  11. METOPROLOL TARTRATE [Concomitant]
  12. POLAPREZINC (POLAPREZINC) [Concomitant]

REACTIONS (7)
  - ANAEMIA FOLATE DEFICIENCY [None]
  - GASTRITIS ATROPHIC [None]
  - HYPERTENSION [None]
  - NEUTROPHIL HYPERSEGMENTED MORPHOLOGY PRESENT [None]
  - OSTEOPOROSIS [None]
  - PANCYTOPENIA [None]
  - VITAMIN B12 DECREASED [None]
